FAERS Safety Report 14831975 (Version 1)
Quarter: 2018Q2

REPORT INFORMATION
  Report Type: Report from Study
  Country: IT (occurrence: IT)
  Receive Date: 20180501
  Receipt Date: 20180501
  Transmission Date: 20180711
  Serious: Yes (Other)
  Sender: FDA-Public Use
  Company Number: IT-BAYER-2018-079301

PATIENT
  Age: 66 Year
  Sex: Female

DRUGS (7)
  1. INFLUENZA VIRUS VACCINE [Interacting]
     Active Substance: INFLUENZA VIRUS VACCINE
     Dosage: UNK
  2. ROSUVASTATIN. [Interacting]
     Active Substance: ROSUVASTATIN
     Dosage: UNK
  3. ORIMUNE [Interacting]
     Active Substance: POLIOVIRUS SABIN TYPE 1 LIVE ANTIGEN\POLIOVIRUS SABIN TYPE 2 LIVE ANTIGEN\POLIOVIRUS SABIN TYPE 3 LIVE ANTIGEN\POLIOVIRUS VACCINE LIVE ORAL TRIVALENT
     Dosage: UNK
  4. VITAMIN D [Suspect]
     Active Substance: CHOLECALCIFEROL
     Dosage: UNK
  5. ASPIRIN. [Suspect]
     Active Substance: ASPIRIN
     Dosage: UNK
  6. HYDROCHLOROTHIAZIDE. [Suspect]
     Active Substance: HYDROCHLOROTHIAZIDE
     Dosage: UNK
  7. CALCIUM [Suspect]
     Active Substance: CALCIUM
     Dosage: UNK

REACTIONS (3)
  - Drug interaction [None]
  - Potentiating drug interaction [None]
  - Myositis [Recovered/Resolved]
